FAERS Safety Report 4745812-X (Version None)
Quarter: 2005Q3

REPORT INFORMATION
  Report Type: 
  Country: None (occurrence: None)
  Receive Date: 20050815
  Receipt Date: 20050815
  Transmission Date: 20060218
  Serious: Yes (Disabling)
  Sender: FDA-Public Use
  Company Number: None

PATIENT
  Age: 64 Year
  Sex: Male
  Weight: 105.2345 kg

DRUGS (2)
  1. NEXIUM [Suspect]
     Dosage: 2XDAILY   BUCCAL
     Route: 002
     Dates: start: 20041022, end: 20041028
  2. DETOX FOR DILAUDID [Concomitant]

REACTIONS (4)
  - DOCUMENTED HYPERSENSITIVITY TO ADMINISTERED DRUG [None]
  - GAIT DISTURBANCE [None]
  - OEDEMA PERIPHERAL [None]
  - SENSORY LOSS [None]
